FAERS Safety Report 6944318-7 (Version None)
Quarter: 2010Q3

REPORT INFORMATION
  Report Type: 
  Country: None (occurrence: None)
  Receive Date: 20100827
  Receipt Date: 20100816
  Transmission Date: 20110219
  Serious: No
  Sender: FDA-Public Use
  Company Number: US-BIOGENIDEC-2010BI028070

PATIENT
  Sex: Male

DRUGS (3)
  1. AVONEX [Suspect]
     Indication: MULTIPLE SCLEROSIS
     Route: 030
     Dates: start: 20030101, end: 20100722
  2. CYCLOBENZAPRINE [Concomitant]
     Indication: MUSCLE SPASMS
     Route: 048
  3. MEDICATION (NOS) [Concomitant]
     Indication: TREMOR
     Route: 048

REACTIONS (1)
  - STRESS [None]
